FAERS Safety Report 8828002 (Version 1)
Quarter: 2012Q4

REPORT INFORMATION
  Report Type: Report from Study
  Country: US (occurrence: US)
  Receive Date: 20121005
  Receipt Date: 20121005
  Transmission Date: 20130627
  Serious: Yes (Hospitalization)
  Sender: FDA-Public Use
  Company Number: US-JNJFOC-20120912773

PATIENT
  Age: 74 None
  Sex: Male
  Weight: 90.72 kg

DRUGS (4)
  1. XARELTO [Suspect]
     Indication: CEREBROVASCULAR ACCIDENT PROPHYLAXIS
     Dosage: ^about a year ago^
     Route: 048
  2. XARELTO [Suspect]
     Indication: ATRIAL FIBRILLATION
     Dosage: ^about a year ago^
     Route: 048
  3. MULTAQ [Concomitant]
  4. MULTIPLE MEDICATIONS [Concomitant]

REACTIONS (3)
  - Haematemesis [Recovered/Resolved]
  - Mitral valve replacement [Unknown]
  - Coronary artery bypass [Unknown]
